FAERS Safety Report 11912641 (Version 1)
Quarter: 2016Q1

REPORT INFORMATION
  Report Type: Spontaneous
  Country: US (occurrence: None)
  Receive Date: 20160112
  Receipt Date: 20160112
  Transmission Date: 20160526
  Serious: Yes (Hospitalization)
  Sender: FDA-Public Use
  Company Number: None

PATIENT
  Age: 64 Year
  Sex: Male
  Weight: 86.2 kg

DRUGS (1)
  1. SIMVASTATIN 40 MG [Suspect]
     Active Substance: SIMVASTATIN
     Indication: HYPERCHOLESTEROLAEMIA
     Route: 048
     Dates: start: 20150713, end: 20151015

REACTIONS (5)
  - Gait disturbance [None]
  - Mental status changes [None]
  - Hypotension [None]
  - Pneumonia [None]
  - Confusional state [None]

NARRATIVE: CASE EVENT DATE: 20151015
